FAERS Safety Report 5115320-5 (Version None)
Quarter: 2006Q3

REPORT INFORMATION
  Report Type: 
  Country: None (occurrence: None)
  Receive Date: 20060921
  Receipt Date: 20060905
  Transmission Date: 20061208
  Serious: Yes (Hospitalization)
  Sender: FDA-Public Use
  Company Number: L06-SWE-03356-05

PATIENT
  Age: 50 Year
  Sex: Male

DRUGS (1)
  1. CARBAMAZEPINE [Suspect]

REACTIONS (3)
  - GLASGOW COMA SCALE ABNORMAL [None]
  - OVERDOSE [None]
  - POISONING DELIBERATE [None]
